FAERS Safety Report 9791795 (Version 3)
Quarter: 2014Q1

REPORT INFORMATION
  Report Type: Spontaneous
  Country: US (occurrence: US)
  Receive Date: 20140102
  Receipt Date: 20140227
  Transmission Date: 20141002
  Serious: Yes (Hospitalization)
  Sender: FDA-Public Use
  Company Number: US-JNJFOC-20131217744

PATIENT
  Age: 26 Year
  Sex: Female
  Weight: 90.72 kg

DRUGS (11)
  1. INVEGA SUSTENNA [Suspect]
     Indication: PRODUCT USED FOR UNKNOWN INDICATION
     Route: 030
  2. DIPHENHYDRAMINE [Concomitant]
     Indication: INSOMNIA
     Route: 065
  3. ADVAIR [Concomitant]
     Indication: PRODUCT USED FOR UNKNOWN INDICATION
     Route: 048
  4. LORATADINE [Concomitant]
     Indication: ASTHMA
     Route: 065
  5. LORATADINE [Concomitant]
     Indication: MULTIPLE ALLERGIES
     Route: 065
  6. ALPRAZOLAM [Concomitant]
     Indication: ANXIETY
     Route: 065
  7. PROAIR (SALBUTAMOL SULFATE) [Concomitant]
     Indication: ASTHMA
     Route: 065
  8. PROAIR (SALBUTAMOL SULFATE) [Concomitant]
     Indication: DYSPNOEA
     Route: 065
  9. CELEBREX [Concomitant]
     Indication: PRODUCT USED FOR UNKNOWN INDICATION
     Route: 065
  10. MONTELUKAST [Concomitant]
     Indication: ASTHMA
     Route: 065
  11. MONTELUKAST [Concomitant]
     Indication: MULTIPLE ALLERGIES
     Route: 065

REACTIONS (2)
  - Blood pressure increased [Unknown]
  - Heart rate increased [Unknown]
